FAERS Safety Report 8213857-3 (Version None)
Quarter: 2012Q1

REPORT INFORMATION
  Report Type: 
  Country: None (occurrence: None)
  Receive Date: 20120316
  Receipt Date: 20120308
  Transmission Date: 20120608
  Serious: Yes (Hospitalization)
  Sender: FDA-Public Use
  Company Number: US-BIOGENIDEC-2012BI008650

PATIENT
  Age: 63 Year
  Sex: Female

DRUGS (5)
  1. TYSABRI [Suspect]
     Route: 042
     Dates: start: 20061018
  2. AVONEX [Concomitant]
     Indication: MULTIPLE SCLEROSIS
     Route: 030
     Dates: start: 20030220, end: 20030520
  3. TYSABRI [Suspect]
     Route: 042
     Dates: start: 20050121, end: 20050301
  4. AVONEX [Concomitant]
     Route: 030
  5. TYSABRI [Suspect]
     Indication: MULTIPLE SCLEROSIS
     Route: 042

REACTIONS (2)
  - PNEUMONIA [None]
  - UPPER RESPIRATORY TRACT INFECTION [None]
